FAERS Safety Report 6666364-3 (Version None)
Quarter: 2010Q1

REPORT INFORMATION
  Report Type: 
  Country: None (occurrence: None)
  Receive Date: 20100331
  Receipt Date: 20100322
  Transmission Date: 20100710
  Serious: Yes (Life-Threatening)
  Sender: FDA-Public Use
  Company Number: 2010S1000023

PATIENT
  Age: 0 Day
  Sex: Male

DRUGS (2)
  1. INOMAX [Suspect]
     Dosage: 20 PPM; CONT; INH
     Route: 025
     Dates: start: 20100322
  2. INOMAX [Suspect]
     Dosage: 20 PPM; CONT; INH
     Route: 025
     Dates: start: 20100322

REACTIONS (2)
  - DEVICE MALFUNCTION [None]
  - OXYGEN SATURATION DECREASED [None]
